FAERS Safety Report 7610706-9 (Version None)
Quarter: 2011Q3

REPORT INFORMATION
  Report Type: 
  Country: None (occurrence: None)
  Receive Date: 20110715
  Receipt Date: 20110712
  Transmission Date: 20111222
  Serious: Yes (Other)
  Sender: FDA-Public Use
  Company Number: US-PFIZER INC-2011157439

PATIENT
  Age: 79 Year
  Sex: Female

DRUGS (4)
  1. LIPITOR [Suspect]
     Dosage: UNK
  2. LEVOTHYROXINE SODIUM [Suspect]
     Dosage: UNK
  3. AVAPRO [Suspect]
     Dosage: UNK
  4. WARFARIN SODIUM [Suspect]
     Dosage: UNK

REACTIONS (2)
  - PAIN IN EXTREMITY [None]
  - MOBILITY DECREASED [None]
